FAERS Safety Report 4848335-2 (Version None)
Quarter: 2005Q4

REPORT INFORMATION
  Report Type: 
  Country: None (occurrence: None)
  Receive Date: 20051208
  Receipt Date: 20050726
  Transmission Date: 20060501
  Serious: Yes (Hospitalization, Disabling)
  Sender: FDA-Public Use
  Company Number: US-MERCK-0507USA04192

PATIENT
  Age: 61 Year
  Sex: Male
  Weight: 68 kg

DRUGS (5)
  1. VIOXX [Suspect]
     Indication: PAIN
     Route: 048
     Dates: start: 20000101, end: 20020821
  2. VIOXX [Suspect]
     Route: 048
     Dates: start: 20020821, end: 20020825
  3. VIOXX [Suspect]
     Indication: ARTHRITIS
     Route: 048
     Dates: start: 20000101, end: 20020821
  4. VIOXX [Suspect]
     Route: 048
     Dates: start: 20020821, end: 20020825
  5. DARVOCET-N 100 [Concomitant]
     Route: 065

REACTIONS (6)
  - ARTHROPATHY [None]
  - CARDIAC FAILURE CONGESTIVE [None]
  - CORONARY ARTERY OCCLUSION [None]
  - GASTRIC HAEMORRHAGE [None]
  - IRITIS [None]
  - MYOCARDIAL INFARCTION [None]
